FAERS Safety Report 8592428-3 (Version None)
Quarter: 2012Q3

REPORT INFORMATION
  Report Type: 
  Country: None (occurrence: None)
  Receive Date: 20120814
  Receipt Date: 20120809
  Transmission Date: 20120928
  Serious: Yes (Life-Threatening)
  Sender: FDA-Public Use
  Company Number: CH-SANOFI-AVENTIS-2012SA057436

PATIENT
  Age: 90 Year
  Sex: Female

DRUGS (1)
  1. ZOLPIDEM [Suspect]
     Route: 048
     Dates: start: 20120719, end: 20120719

REACTIONS (1)
  - COMA [None]
